FAERS Safety Report 7331411-2 (Version None)
Quarter: 2011Q1

REPORT INFORMATION
  Report Type: 
  Country: None (occurrence: None)
  Receive Date: 20110224
  Receipt Date: 20110210
  Transmission Date: 20110831
  Serious: Yes (Death)
  Sender: FDA-Public Use
  Company Number: AE 2011-052

PATIENT
  Age: 90 Year
  Sex: Female

DRUGS (12)
  1. LOPERAMIDE [Concomitant]
  2. PROMETHAZINE [Concomitant]
  3. FAZACLO ODT [Suspect]
     Dosage: 12.5 MG DAILY PO
     Route: 048
     Dates: start: 20101026, end: 20101213
  4. LISINOPRIL [Concomitant]
  5. TYLENOL [Concomitant]
  6. ROPINIROLE [Concomitant]
  7. MIRALAX [Concomitant]
  8. POTASSIUM [Concomitant]
  9. LASIX [Concomitant]
  10. CLONAZEPAM [Concomitant]
  11. COREG [Concomitant]
  12. CALCIUM [Concomitant]

REACTIONS (1)
  - DEATH [None]
